FAERS Safety Report 25314233 (Version 2)
Quarter: 2025Q2

REPORT INFORMATION
  Report Type: Report from Study
  Country: AR (occurrence: AR)
  Receive Date: 20250514
  Receipt Date: 20250624
  Transmission Date: 20250716
  Serious: Yes (Hospitalization)
  Sender: AMGEN
  Company Number: AR-AMGEN-ARGSL2024222005

PATIENT
  Age: 54 Year
  Sex: Female

DRUGS (1)
  1. VECTIBIX [Suspect]
     Active Substance: PANITUMUMAB
     Indication: Colorectal cancer
     Route: 065
     Dates: start: 20240829

REACTIONS (7)
  - Pain [Recovering/Resolving]
  - Rash [Unknown]
  - Nausea [Unknown]
  - Vein rupture [Unknown]
  - Swelling face [Unknown]
  - Tooth infection [Unknown]
  - Unevaluable event [Recovering/Resolving]

NARRATIVE: CASE EVENT DATE: 20240101
